FAERS Safety Report 6189360-1 (Version None)
Quarter: 2009Q2

REPORT INFORMATION
  Report Type: 
  Country: None (occurrence: None)
  Receive Date: 20090512
  Receipt Date: 20090428
  Transmission Date: 20091009
  Serious: Yes (Hospitalization)
  Sender: FDA-Public Use
  Company Number: SPV1-2008-02222

PATIENT
  Age: 43 Year
  Sex: Male
  Weight: 120.2 kg

DRUGS (3)
  1. LIALDA [Suspect]
     Indication: COLITIS ULCERATIVE
     Dosage: 4.8 G, 1X/DAY, ORAL
     Route: 048
     Dates: start: 20080910, end: 20080925
  2. PROTONIX [Concomitant]
  3. QUESTRAN LIGHT          (COLESTYRAMINE) [Concomitant]

REACTIONS (4)
  - DYSPNOEA EXERTIONAL [None]
  - INFLUENZA LIKE ILLNESS [None]
  - SINUS TACHYCARDIA [None]
  - VIRAL MYOCARDITIS [None]
